FAERS Safety Report 4383236-8 (Version None)
Quarter: 2004Q2

REPORT INFORMATION
  Report Type: 
  Country: None (occurrence: None)
  Receive Date: 20040618
  Receipt Date: 20030402
  Transmission Date: 20050107
  Serious: Yes (Life-Threatening, Hospitalization)
  Sender: FDA-Public Use
  Company Number: 2004218595FR

PATIENT
  Age: 87 Year
  Sex: Female

DRUGS (2)
  1. XALATAN [Suspect]
     Indication: GLAUCOMA
     Dosage: 1 GTT, QD; OPHTHALMIC
     Route: 047
     Dates: start: 20000628
  2. COMPARATOR-COSOPT (DORZOLAMIDE HYDROCHLORIDE, TIMOLOL MALEATE) SOLUTIO [Suspect]
     Indication: GLAUCOMA
     Dosage: 1 GTT, BID; OPHTHALMIC
     Route: 047
     Dates: start: 19990621, end: 20020314

REACTIONS (2)
  - ASTHMA [None]
  - HYPOXIA [None]
